FAERS Safety Report 7651450-1 (Version None)
Quarter: 2011Q3

REPORT INFORMATION
  Report Type: 
  Country: None (occurrence: None)
  Receive Date: 20110802
  Receipt Date: 20110722
  Transmission Date: 20111222
  Serious: Yes (Other)
  Sender: FDA-Public Use
  Company Number: PHEH2006US15240

PATIENT
  Sex: Female

DRUGS (22)
  1. TAMOXIFEN CITRATE [Concomitant]
  2. EFFEXOR [Concomitant]
  3. POTASSIUM CHLORIDE [Concomitant]
  4. ZOMETA [Suspect]
     Dosage: UNK
     Dates: start: 20020101
  5. NASONEX [Concomitant]
  6. ADRIAMYCIN PFS [Concomitant]
  7. NAVELBINE [Concomitant]
  8. FEMARA [Concomitant]
  9. XELODA [Concomitant]
  10. PROCRIT                            /00909301/ [Concomitant]
  11. TEQUIN [Concomitant]
  12. NEUPOGEN [Concomitant]
  13. COUMADIN [Concomitant]
  14. CLINDAMYCIN [Concomitant]
  15. PEPCID [Concomitant]
  16. PROXETINE [Concomitant]
  17. XELODA [Concomitant]
  18. MICARDIS [Concomitant]
  19. CIPROFLAXACIN [Concomitant]
  20. ALLEGRA [Concomitant]
  21. COMPAZINE [Concomitant]
  22. PAXIL [Concomitant]

REACTIONS (36)
  - CHOLELITHIASIS [None]
  - GINGIVAL OEDEMA [None]
  - DIZZINESS [None]
  - HYPOKALAEMIA [None]
  - GENERAL PHYSICAL HEALTH DETERIORATION [None]
  - BONE LOSS [None]
  - SINUSITIS [None]
  - OSTEOARTHRITIS [None]
  - WOUND [None]
  - METABOLIC ALKALOSIS [None]
  - DECREASED INTEREST [None]
  - PERIODONTITIS [None]
  - BONE DISORDER [None]
  - COAGULOPATHY [None]
  - FEBRILE NEUTROPENIA [None]
  - HYPOMAGNESAEMIA [None]
  - ANXIETY [None]
  - MALIGNANT PLEURAL EFFUSION [None]
  - GINGIVAL ERYTHEMA [None]
  - NASAL SINUS CANCER [None]
  - MALIGNANT MELANOMA [None]
  - ABSCESS [None]
  - LYMPHADENOPATHY MEDIASTINAL [None]
  - ANIMAL BITE [None]
  - GINGIVAL BLEEDING [None]
  - DEPRESSION [None]
  - OSTEONECROSIS OF JAW [None]
  - PAIN [None]
  - DENTAL FISTULA [None]
  - NEOPLASM MALIGNANT [None]
  - RENAL CYST [None]
  - METASTASES TO LIVER [None]
  - METASTASES TO BONE [None]
  - PULPITIS DENTAL [None]
  - SKIN EXFOLIATION [None]
  - DYSPNOEA [None]
